FAERS Safety Report 6528650-7 (Version None)
Quarter: 2010Q1

REPORT INFORMATION
  Report Type: 
  Country: None (occurrence: None)
  Receive Date: 20100106
  Receipt Date: 20091231
  Transmission Date: 20100710
  Serious: Yes (Hospitalization)
  Sender: FDA-Public Use
  Company Number: US-MERCK-0912USA03507

PATIENT
  Age: 60 Year
  Sex: Male

DRUGS (5)
  1. PRINIVIL [Suspect]
     Route: 048
  2. NAPROX [Suspect]
     Route: 065
  3. AMLODIPINE [Suspect]
     Route: 065
  4. CLOPIDOGREL BISULFATE [Suspect]
     Route: 065
  5. RANITIDINE [Suspect]
     Route: 065

REACTIONS (3)
  - HYPERKALAEMIA [None]
  - PARALYSIS [None]
  - RENAL FAILURE CHRONIC [None]
